FAERS Safety Report 4934139-9 (Version None)
Quarter: 2006Q1

REPORT INFORMATION
  Report Type: 
  Country: None (occurrence: None)
  Receive Date: 20060303
  Receipt Date: 20060222
  Transmission Date: 20060701
  Serious: Yes (Other)
  Sender: FDA-Public Use
  Company Number: 144693USA

PATIENT
  Age: 56 Year
  Sex: Male

DRUGS (8)
  1. COPAXONE [Suspect]
     Indication: MULTIPLE SCLEROSIS
     Dates: start: 20050115
  2. NOVANTRONE [Suspect]
     Dates: start: 20040501, end: 20050301
  3. LIPITOR [Concomitant]
  4. LISINOPRIL [Concomitant]
  5. AMITRIPTYLINE HCL [Concomitant]
  6. METFORMIN [Concomitant]
  7. ASPIRIN [Concomitant]
  8. AVANDIA [Concomitant]

REACTIONS (1)
  - OESOPHAGEAL CARCINOMA [None]
